FAERS Safety Report 6388285-6 (Version None)
Quarter: 2009Q3

REPORT INFORMATION
  Report Type: 
  Country: None (occurrence: None)
  Receive Date: 20090930
  Receipt Date: 20090915
  Transmission Date: 20100115
  Serious: Yes (Other)
  Sender: FDA-Public Use
  Company Number: 2009002813

PATIENT
  Age: 81 Year
  Sex: Male

DRUGS (1)
  1. ERLOTINIB HYDROCHLORIDE [Suspect]
     Indication: LUNG ADENOCARCINOMA
     Dosage: (150 MG,QD),ORAL
     Route: 048
     Dates: start: 20090224, end: 20090729

REACTIONS (4)
  - CATHETER RELATED INFECTION [None]
  - DECREASED APPETITE [None]
  - GENERAL PHYSICAL HEALTH DETERIORATION [None]
  - PLEURAL EFFUSION [None]
